FAERS Safety Report 6858479-1 (Version None)
Quarter: 2010Q2

REPORT INFORMATION
  Report Type: 
  Country: None (occurrence: None)
  Receive Date: 20100526
  Receipt Date: 20090508
  Transmission Date: 20101027
  Serious: Yes (Other)
  Sender: FDA-Public Use
  Company Number: 278819

PATIENT
  Sex: Female

DRUGS (3)
  1. ACTIVELLA [Suspect]
     Indication: HORMONE THERAPY
     Dosage: ORAL
     Route: 048
     Dates: start: 20010101, end: 20060101
  2. PREMARIN [Suspect]
     Indication: HORMONE THERAPY
  3. CELEBREX [Concomitant]

REACTIONS (1)
  - BREAST CANCER [None]
